FAERS Safety Report 23858295 (Version 1)
Quarter: 2024Q2

REPORT INFORMATION
  Report Type: Spontaneous
  Country: US (occurrence: US)
  Receive Date: 20240515
  Receipt Date: 20240515
  Transmission Date: 20240716
  Serious: No
  Sender: FDA-Public Use
  Company Number: US-PFIZER INC-202400107221

PATIENT
  Age: 73 Year
  Sex: Female
  Weight: 60.78 kg

DRUGS (5)
  1. SONATA [Suspect]
     Active Substance: ZALEPLON
     Indication: Insomnia
     Dosage: 5MG, BY MOUTH WITH WATER, AS NEEDED
     Route: 048
     Dates: start: 20240508
  2. HYDROCHLOROTHIAZIDE [Concomitant]
     Active Substance: HYDROCHLOROTHIAZIDE
     Indication: Hypertension
     Dosage: 12.5 MG, 1X/DAY (WITH WATER IN MORNING)
     Route: 048
  3. LAMOTRIGINE [Concomitant]
     Active Substance: LAMOTRIGINE
     Indication: Bipolar disorder
     Dosage: 75 MG, 1X/DAY(3 TABLETS 25MG IN EVENING)
     Route: 048
  4. ARIPIPRAZOLE [Concomitant]
     Active Substance: ARIPIPRAZOLE
     Indication: Bipolar disorder
     Dosage: 2 MG, 1X/DAY IN MORNING
     Route: 048
     Dates: start: 2002
  5. HALDOL [Concomitant]
     Active Substance: HALOPERIDOL
     Indication: Parkinsonism
     Dosage: UNK

REACTIONS (4)
  - Fatigue [Recovering/Resolving]
  - Muscular weakness [Recovering/Resolving]
  - Muscle fatigue [Recovering/Resolving]
  - Body height decreased [Unknown]

NARRATIVE: CASE EVENT DATE: 20240508
